FAERS Safety Report 9370932 (Version 2)
Quarter: 2014Q1

REPORT INFORMATION
  Report Type: Spontaneous
  Country: DK (occurrence: DK)
  Receive Date: 20130627
  Receipt Date: 20140312
  Transmission Date: 20141002
  Serious: Yes (Hospitalization)
  Sender: FDA-Public Use
  Company Number: DK-ROCHE-1239501

PATIENT
  Age: 70 Year
  Sex: Female

DRUGS (1)
  1. BONDRONAT [Suspect]
     Indication: METASTASES TO BONE
     Route: 048
     Dates: start: 200807, end: 201201

REACTIONS (5)
  - Osteonecrosis of jaw [Not Recovered/Not Resolved]
  - Jaw operation [Unknown]
  - Pain in jaw [Unknown]
  - Swelling [Unknown]
  - Infection [Unknown]
